FAERS Safety Report 8966908 (Version 1)
Quarter: 2012Q4

REPORT INFORMATION
  Report Type: 
  Country: ZA (occurrence: ZA)
  Receive Date: 20121214
  Receipt Date: 20121214
  Transmission Date: 20130627
  Serious: Yes (Hospitalization)
  Sender: FDA-Public Use
  Company Number: ZA-ABBOTT-12P-143-1010000-00

PATIENT
  Age: 37 Year
  Sex: Female

DRUGS (3)
  1. HUMIRA [Suspect]
     Indication: CROHN^S DISEASE
     Route: 058
     Dates: start: 201108
  2. MULTIVITAMIN [Concomitant]
     Indication: SUPPLEMENTATION THERAPY
  3. STILPANE [Concomitant]
     Indication: ANALGESIC THERAPY

REACTIONS (7)
  - Abdominal discomfort [Not Recovered/Not Resolved]
  - Mouth ulceration [Not Recovered/Not Resolved]
  - Oropharyngeal pain [Not Recovered/Not Resolved]
  - Gastritis [Not Recovered/Not Resolved]
  - Gastrointestinal infection [Unknown]
  - Abdominal pain [Not Recovered/Not Resolved]
  - Fistula [Unknown]
